FAERS Safety Report 7524723-0 (Version None)
Quarter: 2011Q2

REPORT INFORMATION
  Report Type: 
  Country: None (occurrence: None)
  Receive Date: 20110525
  Receipt Date: 20110512
  Transmission Date: 20111010
  Serious: Yes (Other)
  Sender: FDA-Public Use
  Company Number: PHHY2011JP21547

PATIENT
  Age: 73 Year
  Sex: Male

DRUGS (4)
  1. WARFARIN SODIUM [Suspect]
     Indication: ATRIAL FIBRILLATION
  2. LEUPROLIDE ACETATE [Suspect]
     Indication: PROSTATE CANCER
     Dates: start: 20090101
  3. LOSARTAN POTASSIUM [Concomitant]
  4. VISUDYNE [Suspect]
     Indication: MACULAR DEGENERATION
     Dates: start: 20110302, end: 20110302

REACTIONS (3)
  - NEURALGIA [None]
  - BONE PAIN [None]
  - INSOMNIA [None]
